FAERS Safety Report 24288704 (Version 1)
Quarter: 2024Q3

REPORT INFORMATION
  Report Type: Spontaneous
  Country: US (occurrence: US)
  Receive Date: 20240906
  Receipt Date: 20240906
  Transmission Date: 20241016
  Serious: Yes (Hospitalization)
  Sender: ROCHE
  Company Number: US-ROCHE-10000069968

PATIENT
  Age: 67 Year
  Sex: Female

DRUGS (16)
  1. ADO-TRASTUZUMAB EMTANSINE [Suspect]
     Active Substance: ADO-TRASTUZUMAB EMTANSINE
     Indication: Breast cancer
     Route: 065
  2. ADO-TRASTUZUMAB EMTANSINE [Concomitant]
     Active Substance: ADO-TRASTUZUMAB EMTANSINE
     Indication: Breast cancer
     Route: 065
  3. Herceptin/perjeta [Concomitant]
  4. ANASTROZOLE [Concomitant]
     Active Substance: ANASTROZOLE
  5. CEFEPIME [Concomitant]
     Active Substance: CEFEPIME HYDROCHLORIDE
  6. AZITHROMYCIN [Concomitant]
     Active Substance: AZITHROMYCIN
  7. VANCOMYCIN [Concomitant]
     Active Substance: VANCOMYCIN
  8. METHYLPREDNISOLONE [Concomitant]
     Active Substance: METHYLPREDNISOLONE
  9. PREDNISONE [Concomitant]
     Active Substance: PREDNISONE
  10. RIFAMPIN [Concomitant]
     Active Substance: RIFAMPIN
  11. PYRAZINAMIDE [Concomitant]
     Active Substance: PYRAZINAMIDE
  12. LINEZOLID [Concomitant]
     Active Substance: LINEZOLID
  13. AMIKACIN [Concomitant]
     Active Substance: AMIKACIN
  14. LEVOFLOXACIN [Concomitant]
     Active Substance: LEVOFLOXACIN
  15. DEXAMETHASONE [Concomitant]
     Active Substance: DEXAMETHASONE
  16. MEROPENEM [Concomitant]
     Active Substance: MEROPENEM

REACTIONS (1)
  - Respiratory failure [Unknown]
